FAERS Safety Report 23234614 (Version 1)
Quarter: 2023Q4

REPORT INFORMATION
  Report Type: Report from Study
  Country: CN (occurrence: None)
  Receive Date: 20231128
  Receipt Date: 20231128
  Transmission Date: 20240110
  Serious: Yes (Hospitalization)
  Sender: FDA-Public Use
  Company Number: CN-ROCHE-2956793

PATIENT
  Age: 70 Year
  Sex: Male
  Weight: 54.7 kg

DRUGS (47)
  1. GLOFITAMAB [Suspect]
     Active Substance: GLOFITAMAB
     Indication: Diffuse large B-cell lymphoma recurrent
     Dosage: START DATE OF MOST RECENT DOSE OF 30 MG STUDY DRUG PRIOR TO AE: 03/SEP/2021?START DATE OF MOST RECEN
     Route: 042
     Dates: start: 20210325
  2. OBINUTUZUMAB [Suspect]
     Active Substance: OBINUTUZUMAB
     Indication: Diffuse large B-cell lymphoma recurrent
     Dosage: START DATE OF MOST RECENT DOSE OF 1000 MG STUDY DRUG PRIOR TO AE/SAE: 19/MAR/2021
     Route: 042
     Dates: start: 20210319, end: 20210319
  3. TOCILIZUMAB [Suspect]
     Active Substance: TOCILIZUMAB
     Indication: Diffuse large B-cell lymphoma recurrent
     Dosage: START DATE OF MOST RECENT DOSE OF 400 MG STUDY DRUG PRIOR TO AE AND SAE: 28/MAR/2021
     Route: 042
     Dates: start: 20210326
  4. ACARBOSE [Concomitant]
     Active Substance: ACARBOSE
     Indication: Type 2 diabetes mellitus
     Route: 048
     Dates: start: 2019
  5. METFORMIN HYDROCHLORIDE [Concomitant]
     Active Substance: METFORMIN HYDROCHLORIDE
     Indication: Type 2 diabetes mellitus
     Route: 048
     Dates: start: 202008
  6. COTRIMOXAZOLE [Concomitant]
     Active Substance: SULFAMETHOXAZOLE\TRIMETHOPRIM
     Indication: Infection prophylaxis
     Route: 048
     Dates: start: 20210330
  7. NITROFURAZONE [Concomitant]
     Active Substance: NITROFURAZONE
     Indication: Skin ulcer
     Route: 065
     Dates: start: 20210326
  8. MORPHINE [Concomitant]
     Active Substance: MORPHINE
     Route: 048
     Dates: start: 20210329
  9. METHYLPREDNISOLONE [Concomitant]
     Active Substance: METHYLPREDNISOLONE
     Route: 042
     Dates: start: 20211028, end: 20211028
  10. METHYLPREDNISOLONE [Concomitant]
     Active Substance: METHYLPREDNISOLONE
     Route: 042
     Dates: start: 20210813, end: 20210813
  11. METHYLPREDNISOLONE [Concomitant]
     Active Substance: METHYLPREDNISOLONE
     Route: 042
     Dates: start: 20210903, end: 20210903
  12. METHYLPREDNISOLONE [Concomitant]
     Active Substance: METHYLPREDNISOLONE
     Route: 042
     Dates: start: 20211009, end: 20211009
  13. METHYLPREDNISOLONE [Concomitant]
     Active Substance: METHYLPREDNISOLONE
     Route: 042
     Dates: start: 20211118, end: 20211118
  14. DIPHENHYDRAMINE [Concomitant]
     Active Substance: DIPHENHYDRAMINE
     Route: 030
     Dates: start: 20211009, end: 20211009
  15. DIPHENHYDRAMINE [Concomitant]
     Active Substance: DIPHENHYDRAMINE
     Route: 030
     Dates: start: 20210903, end: 20210903
  16. DIPHENHYDRAMINE [Concomitant]
     Active Substance: DIPHENHYDRAMINE
     Route: 030
     Dates: start: 20210813, end: 20210813
  17. DIPHENHYDRAMINE [Concomitant]
     Active Substance: DIPHENHYDRAMINE
     Route: 030
     Dates: start: 20211028, end: 20211028
  18. DIPHENHYDRAMINE [Concomitant]
     Active Substance: DIPHENHYDRAMINE
     Route: 030
     Dates: start: 20211118, end: 20211118
  19. ACETAMINOPHEN\CAFFEINE [Concomitant]
     Active Substance: ACETAMINOPHEN\CAFFEINE
     Route: 048
     Dates: start: 20211028, end: 20211028
  20. ACETAMINOPHEN\CAFFEINE [Concomitant]
     Active Substance: ACETAMINOPHEN\CAFFEINE
     Route: 048
     Dates: start: 20211009, end: 20211009
  21. ACETAMINOPHEN\CAFFEINE [Concomitant]
     Active Substance: ACETAMINOPHEN\CAFFEINE
     Route: 048
     Dates: start: 20211118, end: 20211118
  22. COMPOUND CODEINE PHOSPHATE AND IBUPROFEN [Concomitant]
     Indication: Post herpetic neuralgia
     Route: 048
     Dates: start: 20211020
  23. COMPOUND CODEINE PHOSPHATE AND IBUPROFEN [Concomitant]
     Indication: Herpes zoster
     Route: 048
     Dates: start: 20211114, end: 20211126
  24. ILAPRAZOLE [Concomitant]
     Active Substance: ILAPRAZOLE
     Route: 042
     Dates: start: 20211028, end: 20211028
  25. DESLORATADINE [Concomitant]
     Active Substance: DESLORATADINE
     Indication: Herpes zoster
     Route: 048
     Dates: start: 20211020, end: 20211025
  26. VALACYCLOVIR HYDROCHLORIDE [Concomitant]
     Active Substance: VALACYCLOVIR HYDROCHLORIDE
     Indication: Herpes zoster
     Route: 048
     Dates: start: 20211020, end: 20211022
  27. GABAPENTIN [Concomitant]
     Active Substance: GABAPENTIN
     Indication: Skin infection
     Route: 048
     Dates: start: 20211020, end: 20211024
  28. GABAPENTIN [Concomitant]
     Active Substance: GABAPENTIN
     Indication: Herpes zoster
  29. GLYCYRRHIZIN [Concomitant]
     Active Substance: GLYCYRRHIZIN
     Indication: Herpes zoster
     Route: 048
     Dates: start: 20210924, end: 20211020
  30. LIDOCAINE [Concomitant]
     Active Substance: LIDOCAINE
     Route: 030
     Dates: start: 20211110, end: 20211110
  31. LIDOCAINE [Concomitant]
     Active Substance: LIDOCAINE
     Dosage: PATCH
     Route: 065
     Dates: start: 20211111, end: 20211128
  32. LIDOCAINE [Concomitant]
     Active Substance: LIDOCAINE
     Route: 030
     Dates: start: 20211112, end: 20211112
  33. CEFUROXIME SODIUM [Concomitant]
     Active Substance: CEFUROXIME SODIUM
     Route: 042
     Dates: start: 20211111, end: 20211111
  34. CEFUROXIME SODIUM [Concomitant]
     Active Substance: CEFUROXIME SODIUM
     Route: 042
     Dates: start: 20211110, end: 20211110
  35. FLURBIPROFEN AXETIL [Concomitant]
     Active Substance: FLURBIPROFEN AXETIL
     Route: 042
     Dates: start: 20211111, end: 20211111
  36. FLURBIPROFEN AXETIL [Concomitant]
     Active Substance: FLURBIPROFEN AXETIL
     Route: 042
     Dates: start: 20211110, end: 20211110
  37. ATROPINE [Concomitant]
     Active Substance: ATROPINE\ATROPINE SULFATE
     Route: 042
     Dates: start: 20211110, end: 20211110
  38. DOPAMINE [Concomitant]
     Active Substance: DOPAMINE HYDROCHLORIDE
     Route: 042
     Dates: start: 20211110, end: 20211110
  39. URAPIDIL [Concomitant]
     Active Substance: URAPIDIL
     Indication: Hypertension
     Route: 042
     Dates: start: 20211110, end: 20211110
  40. FENTANYL [Concomitant]
     Active Substance: FENTANYL\FENTANYL CITRATE
     Route: 042
     Dates: start: 20211110, end: 20211110
  41. PARECOXIB SODIUM [Concomitant]
     Active Substance: PARECOXIB SODIUM
     Route: 042
     Dates: start: 20211110, end: 20211110
  42. HYDROXYETHYL STARCH 130/0.4 AND SODIUM CHLORIDE [Concomitant]
     Route: 042
     Dates: start: 20211110, end: 20211110
  43. VITAMIN C [Concomitant]
     Active Substance: ASCORBIC ACID
     Route: 042
     Dates: start: 20211110, end: 20211111
  44. COMPOUND LIDOCAINE [Concomitant]
     Indication: Postoperative analgesia
     Route: 065
     Dates: start: 20211112
  45. METHYLENE BLUE [Concomitant]
     Active Substance: METHYLENE BLUE
     Route: 042
     Dates: start: 20211112, end: 20211112
  46. ACETAMINOPHEN\CAFFEINE [Concomitant]
     Active Substance: ACETAMINOPHEN\CAFFEINE
     Route: 048
     Dates: start: 20211028, end: 20211028
  47. KETOTIFEN [Concomitant]
     Active Substance: KETOTIFEN
     Indication: Herpes zoster
     Route: 048
     Dates: start: 20211020, end: 20211026

REACTIONS (1)
  - Post herpetic neuralgia [Recovered/Resolved]

NARRATIVE: CASE EVENT DATE: 20211109
